FAERS Safety Report 10525692 (Version 2)
Quarter: 2015Q2

REPORT INFORMATION
  Report Type: Spontaneous
  Country: CH (occurrence: CH)
  Receive Date: 20141017
  Receipt Date: 20150408
  Transmission Date: 20150821
  Serious: Yes (Hospitalization, Other)
  Sender: FDA-Public Use
  Company Number: CH-BAUSCH-BL-2014-005777

PATIENT
  Age: 68 Year
  Sex: Male

DRUGS (4)
  1. HERBESSER [Suspect]
     Active Substance: DILTIAZEM HYDROCHLORIDE
     Indication: SINUS TACHYCARDIA
     Route: 048
  2. BISOPROLOL SALT NOT SPECIFIED [Suspect]
     Active Substance: BISOPROLOL
     Indication: SINUS TACHYCARDIA
     Route: 065
  3. IVABRADINE HYDROCHLORIDE [Interacting]
     Active Substance: IVABRADINE HYDROCHLORIDE
     Indication: TACHYCARDIA
     Route: 065
  4. AZITHROMYCIN [Interacting]
     Active Substance: AZITHROMYCIN ANHYDROUS
     Indication: SINUSITIS
     Route: 065

REACTIONS (6)
  - Oedema peripheral [Unknown]
  - Torsade de pointes [Recovered/Resolved]
  - Syncope [Unknown]
  - Asthma [Unknown]
  - Drug interaction [None]
  - Fatigue [Unknown]
